FAERS Safety Report 7482253-9 (Version None)
Quarter: 2011Q2

REPORT INFORMATION
  Report Type: 
  Country: None (occurrence: None)
  Receive Date: 20110516
  Receipt Date: 20110511
  Transmission Date: 20111010
  Serious: No
  Sender: FDA-Public Use
  Company Number: US-PFIZER INC-2011103161

PATIENT

DRUGS (2)
  1. EFFEXOR [Suspect]
     Indication: DEPRESSION
  2. EFFEXOR XR [Suspect]
     Indication: DEPRESSION

REACTIONS (1)
  - ABDOMINAL DISCOMFORT [None]
